FAERS Safety Report 15209257 (Version 5)
Quarter: 2020Q1

REPORT INFORMATION
  Report Type: Spontaneous
  Country: US (occurrence: US)
  Receive Date: 20180727
  Receipt Date: 20200227
  Transmission Date: 20200409
  Serious: Yes (Hospitalization, Other)
  Sender: FDA-Public Use
  Company Number: US-ASTRAZENECA-2018SE94517

PATIENT
  Age: 20851 Day
  Sex: Female

DRUGS (90)
  1. OMEPRAZOLE. [Suspect]
     Active Substance: OMEPRAZOLE
     Route: 065
     Dates: start: 201306, end: 201309
  2. PANTOPRAZOLE [Suspect]
     Active Substance: PANTOPRAZOLE
     Route: 065
     Dates: start: 20070327
  3. PANTOPRAZOLE [Suspect]
     Active Substance: PANTOPRAZOLE
     Route: 065
     Dates: start: 201405
  4. PRENATAL [Concomitant]
     Active Substance: VITAMINS
  5. LASIX [Concomitant]
     Active Substance: FUROSEMIDE
     Indication: SWELLING
  6. PLAVIX [Concomitant]
     Active Substance: CLOPIDOGREL BISULFATE
     Indication: ANTICOAGULANT THERAPY
  7. RENA-VITE [Concomitant]
     Active Substance: ASCORBIC ACID\BIOTIN\CALCIUM PANTOTHENATE\CYANOCOBALAMIN\FOLIC ACID\NIACINAMIDE\PYRIDOXINE HYDROCHLORIDE\RIBOFLAVIN\THIAMINE MONONITRATE
     Dosage: DAILY
     Route: 048
  8. DILAUDID [Concomitant]
     Active Substance: HYDROMORPHONE HYDROCHLORIDE
     Dosage: DAILY
     Route: 048
  9. NEXIUM [Suspect]
     Active Substance: ESOMEPRAZOLE MAGNESIUM
     Route: 048
     Dates: start: 2006, end: 2011
  10. TUMS [Concomitant]
     Active Substance: CALCIUM CARBONATE
  11. NITROGLYCERIN. [Concomitant]
     Active Substance: NITROGLYCERIN
  12. FENTANYL. [Concomitant]
     Active Substance: FENTANYL
  13. MYCOPHENOLIC ACID. [Concomitant]
     Active Substance: MYCOPHENOLIC ACID
     Indication: IMMUNOSUPPRESSION
  14. VANCOMYCIN [Concomitant]
     Active Substance: VANCOMYCIN
     Route: 065
  15. KETOROLAC [Concomitant]
     Active Substance: KETOROLAC TROMETHAMINE
     Route: 065
  16. LIDODERM [Concomitant]
     Active Substance: LIDOCAINE
  17. PROMETHAZINE [Concomitant]
     Active Substance: PROMETHAZINE HYDROCHLORIDE
  18. TRAMADOL. [Concomitant]
     Active Substance: TRAMADOL
  19. XARELTO [Concomitant]
     Active Substance: RIVAROXABAN
  20. EPOGEN [Concomitant]
     Active Substance: ERYTHROPOIETIN
     Dosage: DAILY
     Route: 048
  21. HALDOL [Concomitant]
     Active Substance: HALOPERIDOL
     Dosage: DAILY
     Route: 048
  22. CARAFATE [Concomitant]
     Active Substance: SUCRALFATE
     Dosage: DAILY
     Route: 048
  23. NEXIUM [Suspect]
     Active Substance: ESOMEPRAZOLE MAGNESIUM
     Route: 048
     Dates: start: 200804
  24. NEXIUM [Suspect]
     Active Substance: ESOMEPRAZOLE MAGNESIUM
     Route: 048
     Dates: start: 200811, end: 200902
  25. OMEPRAZOLE. [Suspect]
     Active Substance: OMEPRAZOLE
     Route: 065
     Dates: start: 201201, end: 201302
  26. FOLBEE [Concomitant]
     Active Substance: CYANOCOBALAMIN\FOLIC ACID\PYRIDOXINE HYDROCHLORIDE
  27. CREON [Concomitant]
     Active Substance: PANCRELIPASE AMYLASE\PANCRELIPASE LIPASE\PANCRELIPASE PROTEASE
     Indication: PANCREATITIS CHRONIC
  28. ASPIRIN. [Concomitant]
     Active Substance: ASPIRIN
     Indication: ANTICOAGULANT THERAPY
  29. HEPARIN [Concomitant]
     Active Substance: HEPARIN SODIUM
     Route: 065
  30. CLONIDINE. [Concomitant]
     Active Substance: CLONIDINE
  31. CALCITRIOL. [Concomitant]
     Active Substance: CALCITRIOL
  32. VENLAFAXINE [Concomitant]
     Active Substance: VENLAFAXINE HYDROCHLORIDE
  33. VITAMIN D [Concomitant]
     Active Substance: VITAMIN D NOS
  34. MIRTAZAPINE. [Concomitant]
     Active Substance: MIRTAZAPINE
     Dosage: DAILY
     Route: 048
  35. CELEXA [Concomitant]
     Active Substance: CITALOPRAM HYDROBROMIDE
     Dosage: DAILY
     Route: 048
  36. ZEMPLAR [Concomitant]
     Active Substance: PARICALCITOL
     Dosage: DAILY
     Route: 048
  37. MIDAZOLAM HYDROCHLORIDE. [Concomitant]
     Active Substance: MIDAZOLAM HYDROCHLORIDE
     Dosage: DAILY
     Route: 048
  38. OXYCODONE [Concomitant]
     Active Substance: OXYCODONE
  39. ATIVAN [Concomitant]
     Active Substance: LORAZEPAM
  40. ZOFRAN [Concomitant]
     Active Substance: ONDANSETRON HYDROCHLORIDE
  41. LASIX [Concomitant]
     Active Substance: FUROSEMIDE
     Indication: BLOOD PRESSURE ABNORMAL
  42. PREDNISOLONE. [Concomitant]
     Active Substance: PREDNISOLONE
     Indication: STEROID THERAPY
  43. LIDOCAINE-PRILOCAINE [Concomitant]
     Active Substance: LIDOCAINE\PRILOCAINE
  44. VITAMIN B COMPLEX [Concomitant]
     Active Substance: CYANOCOBALAMIN\DEXPANTHENOL\NIACINAMIDE\PYRIDOXINE HYDROCHLORIDE\RIBOFLAVIN 5^-PHOSPHATE SODIUM\THIAMINE HYDROCHLORIDE\VITAMIN B COMPLEX
  45. NEXIUM [Suspect]
     Active Substance: ESOMEPRAZOLE MAGNESIUM
     Route: 048
     Dates: start: 20070328
  46. OMEPRAZOLE. [Suspect]
     Active Substance: OMEPRAZOLE
     Route: 065
     Dates: start: 20070328
  47. MELATONIN [Concomitant]
     Active Substance: MELATONIN
  48. MECLIZINE [Concomitant]
     Active Substance: MECLIZINE HYDROCHLORIDE
  49. ALLOPURINOL. [Concomitant]
     Active Substance: ALLOPURINOL
  50. SIMVASTATIN. [Concomitant]
     Active Substance: SIMVASTATIN
  51. DONEPEZIL. [Concomitant]
     Active Substance: DONEPEZIL
  52. KLONOPIN [Concomitant]
     Active Substance: CLONAZEPAM
     Dosage: DAILY
     Route: 048
  53. NEXIUM [Suspect]
     Active Substance: ESOMEPRAZOLE MAGNESIUM
     Route: 048
     Dates: start: 200906, end: 200908
  54. OMEPRAZOLE. [Suspect]
     Active Substance: OMEPRAZOLE
     Route: 065
     Dates: start: 200305
  55. PANTOPRAZOLE [Suspect]
     Active Substance: PANTOPRAZOLE
     Route: 065
     Dates: start: 20180215
  56. TACROLIMUS. [Concomitant]
     Active Substance: TACROLIMUS
     Indication: IMMUNOSUPPRESSION
  57. METOLAZONE. [Concomitant]
     Active Substance: METOLAZONE
     Route: 065
  58. TYLENOL [Concomitant]
     Active Substance: ACETAMINOPHEN
     Indication: PAIN
     Route: 065
  59. METOCLOPRAMIDE. [Concomitant]
     Active Substance: METOCLOPRAMIDE
  60. NEPHRO VITE [Concomitant]
  61. PERCOCET [Concomitant]
     Active Substance: ACETAMINOPHEN\OXYCODONE HYDROCHLORIDE
  62. NACL [Concomitant]
     Active Substance: SODIUM CHLORIDE
     Route: 065
  63. CLINDAMYCIN. [Concomitant]
     Active Substance: CLINDAMYCIN
     Route: 065
  64. HEPARIN SODIUM. [Concomitant]
     Active Substance: HEPARIN SODIUM
  65. SENSIPAR [Concomitant]
     Active Substance: CINACALCET HYDROCHLORIDE
  66. NOVOLOG [Concomitant]
     Active Substance: INSULIN ASPART
     Dosage: DAILY
     Route: 048
  67. OXECTA [Concomitant]
     Active Substance: OXYCODONE HYDROCHLORIDE
     Dosage: DAILY
     Route: 048
  68. NEXIUM [Suspect]
     Active Substance: ESOMEPRAZOLE MAGNESIUM
     Route: 048
     Dates: start: 200605, end: 200612
  69. NEXIUM [Suspect]
     Active Substance: ESOMEPRAZOLE MAGNESIUM
     Route: 048
     Dates: start: 200703, end: 200708
  70. NEXIUM [Suspect]
     Active Substance: ESOMEPRAZOLE MAGNESIUM
     Route: 048
     Dates: start: 200710, end: 200801
  71. POTASSIUM CHLORIDE. [Concomitant]
     Active Substance: POTASSIUM CHLORIDE
     Route: 065
  72. GABAPENTIN. [Concomitant]
     Active Substance: GABAPENTIN
     Indication: NEURALGIA
  73. TERAZOSIN [Concomitant]
     Active Substance: TERAZOSIN HYDROCHLORIDE
  74. METOPROLOL. [Concomitant]
     Active Substance: METOPROLOL
  75. CARDURA [Concomitant]
     Active Substance: DOXAZOSIN MESYLATE
  76. LEVEMIR [Concomitant]
     Active Substance: INSULIN DETEMIR
  77. DIFICID [Concomitant]
     Active Substance: FIDAXOMICIN
     Dosage: DAILY
     Route: 048
  78. NEXIUM [Suspect]
     Active Substance: ESOMEPRAZOLE MAGNESIUM
     Route: 048
     Dates: start: 200808
  79. NEXIUM [Suspect]
     Active Substance: ESOMEPRAZOLE MAGNESIUM
     Route: 048
     Dates: start: 20100208
  80. PANTOPRAZOLE [Suspect]
     Active Substance: PANTOPRAZOLE
     Route: 065
     Dates: start: 20170502
  81. HUMALOG [Concomitant]
     Active Substance: INSULIN LISPRO
  82. LANTUS [Concomitant]
     Active Substance: INSULIN GLARGINE
     Indication: TYPE 2 DIABETES MELLITUS
  83. AMLODIPINE [Concomitant]
     Active Substance: AMLODIPINE BESYLATE
     Route: 065
  84. CLOTRIMAZOLE. [Concomitant]
     Active Substance: CLOTRIMAZOLE
  85. DOCUSATE SODIUM. [Concomitant]
     Active Substance: DOCUSATE SODIUM
  86. CILOSTAZOL. [Concomitant]
     Active Substance: CILOSTAZOL
     Route: 065
  87. TRAZODONE [Concomitant]
     Active Substance: TRAZODONE HYDROCHLORIDE
  88. RENVELA [Concomitant]
     Active Substance: SEVELAMER CARBONATE
  89. WARFARIN [Concomitant]
     Active Substance: WARFARIN
     Dosage: DAILY
     Route: 048
  90. APRESOLINE HYDROCHLORIDE [Concomitant]
     Active Substance: HYDRALAZINE HYDROCHLORIDE
     Dosage: DAILY
     Route: 048

REACTIONS (6)
  - Chronic kidney disease [Not Recovered/Not Resolved]
  - Acute kidney injury [Not Recovered/Not Resolved]
  - Renal failure [Unknown]
  - Hyperparathyroidism secondary [Unknown]
  - Nephrogenic anaemia [Unknown]
  - End stage renal disease [Not Recovered/Not Resolved]

NARRATIVE: CASE EVENT DATE: 20070327
